FAERS Safety Report 10252233 (Version 1)
Quarter: 2014Q2

REPORT INFORMATION
  Report Type: Spontaneous
  Country: GB (occurrence: None)
  Receive Date: 20140619
  Receipt Date: 20140619
  Transmission Date: 20141212
  Serious: Yes (Other)
  Sender: FDA-Public Use
  Company Number: AUR-APL-2014-06467

PATIENT
  Age: 48 Year
  Sex: Male
  Weight: 82.6 kg

DRUGS (1)
  1. AMLODIPINE 5 MG (AMLODIPINE) UNKNOWN, 5MG [Suspect]
     Indication: HYPERTENSION
     Route: 048
     Dates: start: 201310

REACTIONS (9)
  - Abdominal pain [None]
  - Back pain [None]
  - Anxiety [None]
  - Chest pain [None]
  - Depression [None]
  - Product substitution issue [None]
  - Chest discomfort [None]
  - Fatigue [None]
  - Flatulence [None]
